FAERS Safety Report 5795089-1 (Version None)
Quarter: 2008Q2

REPORT INFORMATION
  Report Type: 
  Country: None (occurrence: None)
  Receive Date: 20080630
  Receipt Date: 20080404
  Transmission Date: 20081010
  Serious: No
  Sender: FDA-Public Use
  Company Number: US-BRISTOL-MYERS SQUIBB COMPANY-14139422

PATIENT
  Age: 64 Year
  Sex: Female
  Weight: 66 kg

DRUGS (3)
  1. ORENCIA [Suspect]
     Indication: RHEUMATOID ARTHRITIS
     Dates: start: 20080303
  2. PREDNISONE [Concomitant]
  3. ALLEGRA [Concomitant]

REACTIONS (4)
  - AMNESIA [None]
  - DIZZINESS [None]
  - PARAESTHESIA [None]
  - SENSATION OF BLOOD FLOW [None]
